FAERS Safety Report 5665035-X (Version None)
Quarter: 2008Q1

REPORT INFORMATION
  Report Type: 
  Country: None (occurrence: None)
  Receive Date: 20080314
  Receipt Date: 20080303
  Transmission Date: 20080703
  Serious: Yes (Disabling)
  Sender: FDA-Public Use
  Company Number: FR-PFIZER INC-2008020638

PATIENT
  Sex: Female

DRUGS (7)
  1. LYRICA [Suspect]
     Indication: SYRINGOMYELIA
     Route: 048
     Dates: start: 20070619, end: 20071011
  2. VELITEN [Concomitant]
     Route: 048
  3. TRANDATE [Concomitant]
     Route: 048
  4. PRACTAZIN [Concomitant]
     Route: 048
  5. LEVOTHYROX [Concomitant]
     Route: 048
  6. CALCIUM CARBONATE/COLECALCIFEROL [Concomitant]
     Route: 048
  7. PRAVASTATIN [Concomitant]
     Route: 048

REACTIONS (5)
  - AFFECTIVE DISORDER [None]
  - GAIT DISTURBANCE [None]
  - OEDEMA PERIPHERAL [None]
  - VISION BLURRED [None]
  - WEIGHT INCREASED [None]
